FAERS Safety Report 5926885-5 (Version None)
Quarter: 2008Q4

REPORT INFORMATION
  Report Type: 
  Country: None (occurrence: None)
  Receive Date: 20081022
  Receipt Date: 20081010
  Transmission Date: 20090506
  Serious: Yes (Life-Threatening)
  Sender: FDA-Public Use
  Company Number: JP-SANOFI-SYNTHELABO-A01200812537

PATIENT
  Sex: Male

DRUGS (15)
  1. LEUCOVORIN CALCIUM [Suspect]
     Dosage: 100 MG/M2
     Route: 041
     Dates: start: 20080709, end: 20080709
  2. FLUOROURACIL [Suspect]
     Dosage: 400 MG/M2
     Route: 042
     Dates: start: 20080709, end: 20080710
  3. AVASTIN [Suspect]
     Dosage: 300 MG
     Route: 041
     Dates: start: 20080709, end: 20080709
  4. OXALIPLATIN [Suspect]
     Indication: RECTAL CANCER RECURRENT
     Dosage: 85 MG/M2
     Route: 041
     Dates: start: 20080709, end: 20080709
  5. DEXAMETASON [Concomitant]
     Dosage: UNK
     Route: 065
     Dates: start: 20080404
  6. KYTRIL [Concomitant]
     Dosage: UNK
     Route: 065
     Dates: start: 20080404
  7. MAGMITT [Concomitant]
     Dosage: UNK
     Route: 065
  8. DEPAKENE [Concomitant]
     Dosage: UNK
     Route: 065
  9. GABAPENTIN [Concomitant]
     Dosage: UNK
     Route: 065
  10. FERROMIA [Concomitant]
     Dosage: UNK
     Route: 065
  11. SELBEX [Concomitant]
     Dosage: UNK
     Route: 065
  12. VOLTAREN [Concomitant]
     Dosage: UNK
     Route: 065
  13. OXYNORM [Concomitant]
     Dosage: UNK
     Route: 065
  14. OXYCONTIN [Concomitant]
     Dosage: UNK
     Route: 065
  15. CAMPTOSAR [Suspect]
     Dosage: 150 MG/M2
     Route: 041
     Dates: start: 20080709, end: 20080709

REACTIONS (2)
  - NECROTISING FASCIITIS [None]
  - SEPSIS [None]
